FAERS Safety Report 11546337 (Version 1)
Quarter: 2015Q3

REPORT INFORMATION
  Report Type: Spontaneous
  Country: US (occurrence: US)
  Receive Date: 20150924
  Receipt Date: 20150924
  Transmission Date: 20151125
  Serious: Yes (Other)
  Sender: FDA-Public Use
  Company Number: US-BAUSCH-BL-2015-021646

PATIENT
  Sex: Female

DRUGS (3)
  1. BESIVANCE//BESIFLOXACIN [Concomitant]
     Indication: PRODUCT USED FOR UNKNOWN INDICATION
  2. PROLENSA [Suspect]
     Active Substance: BROMFENAC SODIUM
     Indication: PRODUCT USED FOR UNKNOWN INDICATION
     Route: 065
  3. DUREZOL [Suspect]
     Active Substance: DIFLUPREDNATE
     Indication: PREOPERATIVE CARE
     Dosage: BOTH EYES
     Route: 047
     Dates: start: 201506

REACTIONS (10)
  - Ocular hyperaemia [Unknown]
  - Eye pain [Not Recovered/Not Resolved]
  - Visual acuity reduced [Not Recovered/Not Resolved]
  - Vision blurred [Not Recovered/Not Resolved]
  - Cystoid macular oedema [Unknown]
  - Eye infection [Unknown]
  - Visual field defect [Not Recovered/Not Resolved]
  - Halo vision [Not Recovered/Not Resolved]
  - Lacrimation increased [Unknown]
  - Ocular discomfort [Not Recovered/Not Resolved]

NARRATIVE: CASE EVENT DATE: 2015
